FAERS Safety Report 6025939-5 (Version None)
Quarter: 2008Q4

REPORT INFORMATION
  Report Type: 
  Country: None (occurrence: None)
  Receive Date: 20081230
  Receipt Date: 20081210
  Transmission Date: 20090506
  Serious: No
  Sender: FDA-Public Use
  Company Number: 8040264

PATIENT
  Sex: Male

DRUGS (5)
  1. KEPPRA [Suspect]
     Indication: CONVULSION
     Dosage: I G IV
     Route: 042
     Dates: start: 20081206
  2. MORPHINE SULFATE [Concomitant]
  3. ALLOPURINOL [Concomitant]
  4. METFORMIN HCL [Concomitant]
  5. AMBIEN [Concomitant]

REACTIONS (2)
  - INJECTION SITE EXTRAVASATION [None]
  - MEDICATION ERROR [None]
